FAERS Safety Report 7134641-8 (Version None)
Quarter: 2010Q4

REPORT INFORMATION
  Report Type: 
  Country: None (occurrence: None)
  Receive Date: 20101203
  Receipt Date: 20101123
  Transmission Date: 20110411
  Serious: Yes (Hospitalization)
  Sender: FDA-Public Use
  Company Number: PHHY2010FR80863

PATIENT

DRUGS (1)
  1. SANDIMMUNE [Suspect]
     Indication: BLOOD DISORDER
     Dosage: UNK
     Dates: start: 20101101

REACTIONS (2)
  - BLOOD CREATININE INCREASED [None]
  - RENAL FAILURE ACUTE [None]
